FAERS Safety Report 18585357 (Version 1)
Quarter: 2020Q4

REPORT INFORMATION
  Report Type: Spontaneous
  Country: CN (occurrence: CN)
  Receive Date: 20201207
  Receipt Date: 20201207
  Transmission Date: 20210114
  Serious: Yes (Other)
  Sender: FDA-Public Use
  Company Number: CN-PFIZER INC-2020475325

PATIENT
  Age: 78 Year
  Sex: Male

DRUGS (2)
  1. KE LE BI TUO [Concomitant]
     Active Substance: LEVOFLOXACIN
     Indication: URINARY TRACT INFECTION
     Dosage: 0.5 G, 1X/DAY
     Route: 048
     Dates: start: 20201118, end: 20201121
  2. LYRICA [Suspect]
     Active Substance: PREGABALIN
     Indication: CERVICOBRACHIAL SYNDROME
     Dosage: 75 MG, 2X/DAY
     Route: 048
     Dates: start: 20201118, end: 20201121

REACTIONS (3)
  - Seizure [Recovered/Resolved]
  - Muscle spasms [Recovered/Resolved]
  - Off label use [Unknown]

NARRATIVE: CASE EVENT DATE: 20201118
